FAERS Safety Report 9303351 (Version 1)
Quarter: 2013Q2

REPORT INFORMATION
  Report Type: Spontaneous
  Country: CH (occurrence: CH)
  Receive Date: 20130522
  Receipt Date: 20130522
  Transmission Date: 20140414
  Serious: Yes (Other)
  Sender: FDA-Public Use
  Company Number: CH-TEVA-404644ISR

PATIENT
  Sex: Female

DRUGS (1)
  1. NIFEDIPIN-MEPHA RETARD [Suspect]
     Indication: PRODUCT USED FOR UNKNOWN INDICATION
     Route: 048

REACTIONS (3)
  - Drug dispensing error [Unknown]
  - Induced labour [Unknown]
  - Exposure during pregnancy [None]
